FAERS Safety Report 6418073-3 (Version None)
Quarter: 2009Q4

REPORT INFORMATION
  Report Type: 
  Country: None (occurrence: None)
  Receive Date: 20091028
  Receipt Date: 20091019
  Transmission Date: 20100525
  Serious: Yes (Hospitalization)
  Sender: FDA-Public Use
  Company Number: FI-PFIZER INC-2009284825

PATIENT
  Age: 66 Year

DRUGS (17)
  1. UNASYN [Suspect]
     Indication: PNEUMONIA
     Dosage: 3 G, 4X/DAY
     Route: 042
     Dates: start: 20091011, end: 20091013
  2. ERDOPECT [Concomitant]
     Dosage: 300 MG, 2X/DAY
     Route: 048
  3. DUREKAL [Concomitant]
     Dosage: 1 G, 1X/DAY
     Route: 048
  4. PAROXETINE HCL [Concomitant]
     Dosage: 60 MG, 1X/DAY
     Route: 048
  5. LEVOZIN [Concomitant]
     Dosage: 25 MG, 1X/DAY
     Route: 048
  6. LYRICA [Concomitant]
     Dosage: 150 MG, 3X/DAY
     Route: 048
  7. GLUCOSAMINE [Concomitant]
     Dosage: 400 MG, 3X/DAY
     Route: 048
  8. MONTELUKAST SODIUM [Concomitant]
     Dosage: 10 MG, 1X/DAY
     Route: 048
  9. RETAFYLLIN [Concomitant]
     Dosage: 200 MG, 2X/DAY
     Route: 048
  10. SYMBICORT TURBUHALER ^ASTRAZENECA^ [Concomitant]
     Dosage: UNK
     Route: 055
  11. AMLODIPINE BESYLATE AND VALSARTAN [Concomitant]
     Dosage: UNK
     Route: 048
  12. MICARDIS [Concomitant]
     Dosage: 40 MG, 1X/DAY
     Route: 048
  13. FURESIS [Concomitant]
     Dosage: 20 MG, 2X/DAY
     Route: 048
  14. ROXIBION [Concomitant]
     Dosage: 150 MG, 2X/DAY
     Route: 048
  15. PREDNISOLONE [Concomitant]
     Dosage: 40 MG, 1X/DAY
     Route: 048
  16. PULMICORT [Concomitant]
     Dosage: 500 UG, 2X/DAY
     Route: 055
  17. OPAMOX [Concomitant]
     Dosage: UNK
     Route: 048

REACTIONS (1)
  - MELAENA [None]
